FAERS Safety Report 23977664 (Version 1)
Quarter: 2024Q2

REPORT INFORMATION
  Report Type: Spontaneous
  Country: DE (occurrence: DE)
  Receive Date: 20240614
  Receipt Date: 20240614
  Transmission Date: 20240716
  Serious: Yes (Other)
  Sender: FDA-Public Use
  Company Number: None

PATIENT
  Age: 20 Year
  Sex: Male
  Weight: 96 kg

DRUGS (1)
  1. SERTRALINE [Suspect]
     Active Substance: SERTRALINE HYDROCHLORIDE
     Indication: Depression
     Dosage: INCREASE THE DOSE APPROXIMATELY WEEKLY INCREASE AFTER START OF USE. INITIAL DOSE 50 MG THEN 100 MG
     Route: 048
     Dates: start: 202310, end: 202311

REACTIONS (5)
  - Erectile dysfunction [Recovered/Resolved with Sequelae]
  - Genital anaesthesia [Recovered/Resolved with Sequelae]
  - Loss of libido [Recovered/Resolved with Sequelae]
  - Anorgasmia [Recovering/Resolving]
  - Ejaculation failure [Recovered/Resolved with Sequelae]

NARRATIVE: CASE EVENT DATE: 20231001
